FAERS Safety Report 7786977-5 (Version None)
Quarter: 2011Q3

REPORT INFORMATION
  Report Type: 
  Country: None (occurrence: None)
  Receive Date: 20110927
  Receipt Date: 20110916
  Transmission Date: 20111222
  Serious: Yes (Hospitalization, Disabling)
  Sender: FDA-Public Use
  Company Number: 2011MA014025

PATIENT
  Sex: Male

DRUGS (1)
  1. FEVERALL [Suspect]

REACTIONS (1)
  - VOMITING [None]
